FAERS Safety Report 15296049 (Version 4)
Quarter: 2019Q3

REPORT INFORMATION
  Report Type: Spontaneous
  Country: US (occurrence: US)
  Receive Date: 20180820
  Receipt Date: 20190807
  Transmission Date: 20191004
  Serious: No
  Sender: FDA-Public Use
  Company Number: US-PFIZER INC-2018332834

PATIENT
  Age: 58 Year
  Sex: Female

DRUGS (1)
  1. LYRICA [Suspect]
     Active Substance: PREGABALIN
     Dosage: 300 MG, 2X/DAY (3 IN THE MORNING AND 3 AT NIGHT)

REACTIONS (4)
  - Pain [Unknown]
  - Abdominal pain upper [Unknown]
  - Drug withdrawal syndrome [Unknown]
  - Nausea [Unknown]
